FAERS Safety Report 11718272 (Version 1)
Quarter: 2015Q4

REPORT INFORMATION
  Report Type: Spontaneous
  Country: US (occurrence: None)
  Receive Date: 20151109
  Receipt Date: 20151109
  Transmission Date: 20160304
  Serious: Yes (Hospitalization, Disabling)
  Sender: FDA-Public Use
  Company Number: None

PATIENT
  Age: 36 Year
  Sex: Female
  Weight: 46.72 kg

DRUGS (1)
  1. CIPRO [Suspect]
     Active Substance: CIPROFLOXACIN HYDROCHLORIDE
     Indication: INFECTION PARASITIC

REACTIONS (11)
  - Scar [None]
  - Memory impairment [None]
  - Hypoaesthesia [None]
  - Blood pressure increased [None]
  - Intervertebral disc degeneration [None]
  - Hypersensitivity [None]
  - Feeling abnormal [None]
  - Confusional state [None]
  - Intervertebral disc protrusion [None]
  - Neuropathy peripheral [None]
  - Increased tendency to bruise [None]

NARRATIVE: CASE EVENT DATE: 20061106
